FAERS Safety Report 20705067 (Version 3)
Quarter: 2023Q2

REPORT INFORMATION
  Report Type: Report from Study
  Country: AT (occurrence: AT)
  Receive Date: 20220413
  Receipt Date: 20230509
  Transmission Date: 20230722
  Serious: Yes (Hospitalization)
  Sender: FDA-Public Use
  Company Number: AT-ROCHE-2771980

PATIENT
  Age: 54 Year
  Sex: Female
  Weight: 98.8 kg

DRUGS (50)
  1. CARBOPLATIN [Suspect]
     Active Substance: CARBOPLATIN
     Indication: Small cell lung cancer extensive stage
     Dosage: 853.8 MG
     Route: 065
     Dates: start: 20210105
  2. CARBOPLATIN [Suspect]
     Active Substance: CARBOPLATIN
     Dosage: UNK
     Dates: start: 20211210, end: 20211210
  3. ATEZOLIZUMAB [Suspect]
     Active Substance: ATEZOLIZUMAB
     Indication: Small cell lung cancer extensive stage
     Dosage: 1200 MG
     Route: 042
     Dates: start: 20201211
  4. ATEZOLIZUMAB [Suspect]
     Active Substance: ATEZOLIZUMAB
     Dosage: 1200 MG, EVERY 3 WEEKS (START AND END DATE OF MOST RECENT DOSE OF STUDY DRUG PRIOR TO AE 26JAN2021 )
     Route: 041
     Dates: start: 20210105
  5. ATEZOLIZUMAB [Suspect]
     Active Substance: ATEZOLIZUMAB
     Dosage: 1200 MG
  6. ETOPOSIDE [Suspect]
     Active Substance: ETOPOSIDE
     Indication: Small cell lung cancer extensive stage
     Dosage: 212 MG
     Route: 042
     Dates: start: 20201211
  7. ETOPOSIDE [Suspect]
     Active Substance: ETOPOSIDE
     Dosage: 212 MG
     Route: 042
     Dates: start: 20210105
  8. ETOPOSIDE [Suspect]
     Active Substance: ETOPOSIDE
     Dosage: UNK
     Dates: start: 20211210
  9. AMLODIPINE [Concomitant]
     Active Substance: AMLODIPINE BESYLATE
     Dosage: UNK UNK, 1X/DAY
     Dates: start: 200911
  10. ARANESP [Concomitant]
     Active Substance: DARBEPOETIN ALFA
     Indication: Prophylaxis
     Dosage: UNK, 1X/DAY
     Dates: start: 20210215, end: 20210215
  11. ARANESP [Concomitant]
     Active Substance: DARBEPOETIN ALFA
     Dosage: UNK UNK, 1X/DAY
     Dates: start: 20210319, end: 20210319
  12. CALCIDURAN [ASCORBIC ACID;CALCIUM PHOSPHATE DIBASIC;COLECALCIFEROL] [Concomitant]
     Dosage: UNK UNK, 1X/DAY
     Dates: start: 20210224
  13. CARVEDILOL [Concomitant]
     Active Substance: CARVEDILOL
     Dosage: UNK UNK, 1X/DAY
     Dates: start: 200905
  14. COMIRNATY [Concomitant]
     Active Substance: TOZINAMERAN
     Indication: COVID-19 immunisation
     Dosage: DOSE NUMBER UNKNOWN, SINGLE (BIONTECH/PFIZER )
     Dates: start: 20210327, end: 20210327
  15. CYCLOPHOSPHAMIDE [Concomitant]
     Active Substance: CYCLOPHOSPHAMIDE
     Dosage: UNK
     Dates: start: 20210713, end: 20210915
  16. DEXAMETHASONE [Concomitant]
     Active Substance: DEXAMETHASONE
     Dosage: UNK, 1X/DAY
     Dates: start: 20210105, end: 20210107
  17. DEXAMETHASONE [Concomitant]
     Active Substance: DEXAMETHASONE
     Dosage: UNK
     Dates: start: 20210126, end: 20210128
  18. DEXAMETHASONE [Concomitant]
     Active Substance: DEXAMETHASONE
     Dosage: UNK (NUMBER OF UNITS IN THE INTERVAL: 0.5 DAYS)
     Dates: start: 20210218, end: 20210220
  19. DEXAMETHASONE [Concomitant]
     Active Substance: DEXAMETHASONE
     Dosage: UNK, 1X/DAY
     Dates: start: 20210221, end: 20210223
  20. DEXAMETHASONE [Concomitant]
     Active Substance: DEXAMETHASONE
     Dosage: UNK
     Dates: start: 20210224, end: 20210226
  21. DEXAMETHASONE [Concomitant]
     Active Substance: DEXAMETHASONE
     Dosage: UNK UNK, 1X/DAY
     Dates: start: 20210317, end: 20210319
  22. DEXABENE [Concomitant]
     Indication: Parotitis
     Dosage: UNK
     Dates: start: 20210217, end: 20210218
  23. DEXABENE [Concomitant]
     Dosage: UNK, 1X/DAY
     Dates: start: 20210222, end: 20210223
  24. EPIRUBICIN [Concomitant]
     Active Substance: EPIRUBICIN
     Dosage: UNK
     Dates: start: 20210713, end: 20210914
  25. GABAPENTIN [Concomitant]
     Active Substance: GABAPENTIN
     Dosage: UNK (NUMBER OF UNITS IN THE INTERVAL:0.5)
     Dates: start: 201809
  26. HYDROMORPHONE HYDROCHLORIDE [Concomitant]
     Active Substance: HYDROMORPHONE HYDROCHLORIDE
     Dosage: 2 MG (RET. 2MG) (NUMBER OF UNITS IN THE INTERVAL: 0.5 DAYS)
     Dates: start: 20210317
  27. HYDROMORPHONE HYDROCHLORIDE [Concomitant]
     Active Substance: HYDROMORPHONE HYDROCHLORIDE
     Dosage: 1.3 MG
     Dates: start: 20210319
  28. JANUMET [Concomitant]
     Active Substance: METFORMIN HYDROCHLORIDE\SITAGLIPTIN PHOSPHATE
     Dosage: UNK (NUMBER OF UNITS IN THE INTERVAL: 0.5 DAYS)
     Dates: start: 201706
  29. LANSOBENE [Concomitant]
     Dosage: UNK UNK, 1X/DAY
     Dates: start: 200509
  30. EDOXABAN TOSYLATE [Concomitant]
     Active Substance: EDOXABAN TOSYLATE
     Dosage: UNK, 1X/DAY
     Dates: start: 202007, end: 20210126
  31. EDOXABAN TOSYLATE [Concomitant]
     Active Substance: EDOXABAN TOSYLATE
     Dosage: UNK UNK, 1X/DAY
     Dates: start: 20210129
  32. POLYETHYLENE GLYCOL 3350\POTASSIUM CHLORIDE\SODIUM BICARBONATE\SODIUM [Concomitant]
     Active Substance: POLYETHYLENE GLYCOL 3350\POTASSIUM CHLORIDE\SODIUM BICARBONATE\SODIUM CHLORIDE
     Dosage: UNK UNK, 1X/DAY
     Dates: start: 20210319
  33. NEULASTA [Concomitant]
     Active Substance: PEGFILGRASTIM
     Dosage: UNK UNK, 1X/DAY
     Dates: start: 20210227, end: 20210227
  34. NEULASTA [Concomitant]
     Active Substance: PEGFILGRASTIM
     Dosage: UNK UNK, 1X/DAY
     Dates: start: 20210320, end: 20210320
  35. NOVALGIN (METAMIZOLE SODIUM) [Concomitant]
     Active Substance: METAMIZOLE SODIUM
     Dosage: UNK
     Dates: start: 202012
  36. CHOLECALCIFEROL [Concomitant]
     Active Substance: CHOLECALCIFEROL
     Indication: Prophylaxis
     Dosage: UNK UNK, 1X/DAY
     Dates: start: 20210225
  37. ONDANSETRON [Concomitant]
     Active Substance: ONDANSETRON
     Dosage: UNK, 1X/DAY
     Dates: start: 20210105, end: 20210107
  38. ONDANSETRON [Concomitant]
     Active Substance: ONDANSETRON
     Dosage: UNK (NUMBER OF UNITS IN THE INTERVAL: 0.5 DAYS)
     Dates: start: 20210108, end: 20210112
  39. ONDANSETRON [Concomitant]
     Active Substance: ONDANSETRON
     Dosage: UNK
     Dates: start: 20210126, end: 20210128
  40. ONDANSETRON [Concomitant]
     Active Substance: ONDANSETRON
     Dosage: UNK
     Dates: start: 20210129, end: 20210202
  41. ONDANSETRON [Concomitant]
     Active Substance: ONDANSETRON
     Dosage: UNK
     Dates: start: 20210224, end: 20210226
  42. ONDANSETRON [Concomitant]
     Active Substance: ONDANSETRON
     Dosage: UNK UNK, 1X/DAY
     Dates: start: 20210227, end: 20210303
  43. ONDANSETRON [Concomitant]
     Active Substance: ONDANSETRON
     Dosage: UNK, 1X/DAY
     Dates: start: 20210317, end: 20210324
  44. ONDANSETRON [Concomitant]
     Active Substance: ONDANSETRON
     Dosage: 16 MG, 1X/DAY
     Dates: start: 20210320
  45. ONDANSETRON [Concomitant]
     Active Substance: ONDANSETRON
     Dosage: UNK
     Dates: start: 20210326
  46. SPIRIVA [Concomitant]
     Active Substance: TIOTROPIUM BROMIDE MONOHYDRATE
     Dosage: UNK UNK, 1X/DAY
     Dates: start: 20201203
  47. TEGRETOL [Concomitant]
     Active Substance: CARBAMAZEPINE
     Dosage: UNK (NUMBER OF UNITS IN THE INTERVAL: 0.5 DAYS)
     Dates: start: 202011
  48. VINCRISTINE [Concomitant]
     Active Substance: VINCRISTINE
     Dosage: UNK
     Dates: start: 20210713, end: 20210914
  49. XGEVA [Concomitant]
     Active Substance: DENOSUMAB
     Dosage: UNK, 1X/DAY
     Dates: start: 20210226, end: 20210226
  50. XGEVA [Concomitant]
     Active Substance: DENOSUMAB
     Dosage: UNK, 1X/DAY
     Dates: start: 20210319, end: 20210319

REACTIONS (6)
  - Parotitis [Not Recovered/Not Resolved]
  - Anaemia [Not Recovered/Not Resolved]
  - Platelet count decreased [Recovered/Resolved]
  - Pyrexia [Recovered/Resolved]
  - Chest pain [Not Recovered/Not Resolved]
  - Fatigue [Not Recovered/Not Resolved]

NARRATIVE: CASE EVENT DATE: 20201214
